FAERS Safety Report 18222381 (Version 1)
Quarter: 2020Q3

REPORT INFORMATION
  Report Type: Spontaneous
  Country: US (occurrence: US)
  Receive Date: 20200902
  Receipt Date: 20200902
  Transmission Date: 20201103
  Serious: Yes (Other)
  Sender: FDA-Public Use
  Company Number: None

PATIENT
  Age: 64 Year
  Sex: Female
  Weight: 79.65 kg

DRUGS (8)
  1. SYMBICORT [Concomitant]
     Active Substance: BUDESONIDE\FORMOTEROL FUMARATE DIHYDRATE
  2. CETIRIZINE [Concomitant]
     Active Substance: CETIRIZINE HYDROCHLORIDE
  3. MULTIVITAMIN GENERIC [Concomitant]
  4. MONTELUKAST [Suspect]
     Active Substance: MONTELUKAST SODIUM
     Indication: HYPERSENSITIVITY
     Route: 048
  5. VENTOLIN [Concomitant]
     Active Substance: ALBUTEROL SULFATE
  6. ALBUTEROL. [Concomitant]
     Active Substance: ALBUTEROL
  7. METHOCARBAMOL. [Concomitant]
     Active Substance: METHOCARBAMOL
  8. FLUTICASONE. [Concomitant]
     Active Substance: FLUTICASONE

REACTIONS (13)
  - Crying [None]
  - Oropharyngeal pain [None]
  - Irritability [None]
  - Abnormal dreams [None]
  - Eructation [None]
  - Headache [None]
  - Eye disorder [None]
  - Contusion [None]
  - Muscle spasms [None]
  - Dyspnoea [None]
  - Rhinorrhoea [None]
  - Heart rate increased [None]
  - Nasal congestion [None]

NARRATIVE: CASE EVENT DATE: 20200831
